FAERS Safety Report 5416953-9 (Version None)
Quarter: 2007Q3

REPORT INFORMATION
  Report Type: 
  Country: None (occurrence: None)
  Receive Date: 20070816
  Receipt Date: 20070806
  Transmission Date: 20080115
  Serious: Yes (Hospitalization, Other)
  Sender: FDA-Public Use
  Company Number: CZ-PFIZER INC-2007065330

PATIENT
  Age: 31 Year
  Sex: Female

DRUGS (5)
  1. SOLU-MEDROL [Suspect]
     Indication: DERMATOMYOSITIS
  2. ALENDRONATE SODIUM [Concomitant]
  3. RISEDRONATE SODIUM [Concomitant]
  4. PREDNISONE TAB [Concomitant]
  5. METHOTREXATE [Concomitant]

REACTIONS (3)
  - LIVER DISORDER [None]
  - PANCYTOPENIA [None]
  - WEIGHT DECREASED [None]
